FAERS Safety Report 8581364-4 (Version None)
Quarter: 2012Q3

REPORT INFORMATION
  Report Type: 
  Country: None (occurrence: None)
  Receive Date: 20120727
  Receipt Date: 20120711
  Transmission Date: 20120928
  Serious: Yes (Death, Life-Threatening, Hospitalization, Other)
  Sender: FDA-Public Use
  Company Number: 2012MA008612

PATIENT
  Age: 15 Month
  Sex: Female

DRUGS (1)
  1. KADIAN [Suspect]
     Indication: PRODUCT USED FOR UNKNOWN INDICATION
     Dates: end: 20100101

REACTIONS (13)
  - NO THERAPEUTIC RESPONSE [None]
  - BRAIN HERNIATION [None]
  - TOXICITY TO VARIOUS AGENTS [None]
  - HEART RATE INCREASED [None]
  - ILL-DEFINED DISORDER [None]
  - RESPIRATORY ARREST [None]
  - BRAIN OEDEMA [None]
  - ACCIDENTAL DRUG INTAKE BY CHILD [None]
  - UNRESPONSIVE TO STIMULI [None]
  - WHEEZING [None]
  - BLOOD GLUCOSE DECREASED [None]
  - DRUG SCREEN POSITIVE [None]
  - HYPOXIC-ISCHAEMIC ENCEPHALOPATHY [None]
